FAERS Safety Report 4436780-9 (Version None)
Quarter: 2004Q3

REPORT INFORMATION
  Report Type: 
  Country: None (occurrence: None)
  Receive Date: 20040830
  Receipt Date: 20040819
  Transmission Date: 20050211
  Serious: Yes (Other)
  Sender: FDA-Public Use
  Company Number: PHBS2004US11036

PATIENT
  Age: 31 Year
  Sex: Male

DRUGS (6)
  1. CLOMIPRAMINE HCL [Suspect]
     Route: 065
  2. METHYLPHENIDATE HCL [Suspect]
     Route: 065
  3. CITALOPRAM [Concomitant]
     Route: 065
  4. TRIHEXYPHENIDYL HCL [Concomitant]
     Route: 065
  5. BUSPIRONE [Concomitant]
     Route: 065
  6. OLANZAPINE [Suspect]
     Dosage: 10 MG/D
     Route: 065

REACTIONS (7)
  - ACANTHOSIS NIGRICANS [None]
  - BLOOD CHOLESTEROL INCREASED [None]
  - DIABETES MELLITUS [None]
  - HYPERGLYCAEMIA [None]
  - HYPERTRIGLYCERIDAEMIA [None]
  - RASH PAPULAR [None]
  - XANTHOMA [None]
